FAERS Safety Report 7653582-0 (Version None)
Quarter: 2011Q3

REPORT INFORMATION
  Report Type: 
  Country: None (occurrence: None)
  Receive Date: 20110803
  Receipt Date: 20110720
  Transmission Date: 20111222
  Serious: No
  Sender: FDA-Public Use
  Company Number: US-B.I. PHARMACEUTICALS,INC./RIDGEFIELD-2011-BP-18126BP

PATIENT
  Sex: Male

DRUGS (3)
  1. LISINOPRIL [Suspect]
  2. CATAPRES-TTS-1 [Suspect]
  3. VALTURNA [Suspect]
     Indication: HYPERTENSION

REACTIONS (1)
  - HYPERTENSION [None]
